FAERS Safety Report 24358363 (Version 11)
Quarter: 2025Q1

REPORT INFORMATION
  Report Type: Spontaneous
  Country: US (occurrence: US)
  Receive Date: 20240924
  Receipt Date: 20250214
  Transmission Date: 20250409
  Serious: Yes (Hospitalization)
  Sender: IPSEN BIOPHARMACEUTICALS, INC.
  Company Number: US-IPSEN Group, Research and Development-2024-18880

PATIENT
  Age: 8 Year
  Sex: Male

DRUGS (6)
  1. BYLVAY [Suspect]
     Active Substance: ODEVIXIBAT
     Indication: Congenital hepatobiliary anomaly
     Dosage: TAKE THREE 1200 MCG ORAL CAPSULES BY MOUTH ONCE DAILY WITH A MEAL.
     Route: 048
     Dates: start: 20240405
  2. BYLVAY [Suspect]
     Active Substance: ODEVIXIBAT
     Indication: Pruritus
  3. RIFAMPIN [Concomitant]
     Active Substance: RIFAMPIN
  4. URSODIOL [Concomitant]
     Active Substance: URSODIOL
  5. HYDROCORTISONE [Concomitant]
     Active Substance: HYDROCORTISONE
  6. FLINTSTONES COMPLETE VITAMIN [Concomitant]

REACTIONS (6)
  - Abdominal pain [Not Recovered/Not Resolved]
  - Disease complication [Not Recovered/Not Resolved]
  - Constipation [Not Recovered/Not Resolved]
  - Flatulence [Not Recovered/Not Resolved]
  - Hyperchlorhydria [Not Recovered/Not Resolved]
  - Product taste abnormal [Unknown]
